FAERS Safety Report 6382208-1 (Version None)
Quarter: 2009Q3

REPORT INFORMATION
  Report Type: 
  Country: None (occurrence: None)
  Receive Date: 20090930
  Receipt Date: 20090925
  Transmission Date: 20100115
  Serious: Yes (Other)
  Sender: FDA-Public Use
  Company Number: BR-BRISTOL-MYERS SQUIBB COMPANY-14797153

PATIENT

DRUGS (1)
  1. BECENUN [Suspect]

REACTIONS (1)
  - CONVULSION [None]
